FAERS Safety Report 6345182-X (Version None)
Quarter: 2009Q3

REPORT INFORMATION
  Report Type: 
  Country: None (occurrence: None)
  Receive Date: 20090909
  Receipt Date: 20090901
  Transmission Date: 20100115
  Serious: Yes (Hospitalization)
  Sender: FDA-Public Use
  Company Number: JP-JNJFOC-20090901822

PATIENT
  Sex: Female
  Weight: 52 kg

DRUGS (8)
  1. ITRIZOLE [Suspect]
     Indication: PYREXIA
     Route: 041
     Dates: start: 20090720, end: 20090726
  2. ITRIZOLE [Suspect]
     Indication: DRUG USE FOR UNKNOWN INDICATION
     Route: 048
     Dates: start: 20090727, end: 20090805
  3. NEUTROGIN [Suspect]
     Indication: NEUTROPENIA
     Route: 058
     Dates: start: 20090714, end: 20090726
  4. FINIBAX [Suspect]
     Indication: FEBRILE NEUTROPENIA
     Route: 042
     Dates: start: 20090717, end: 20090731
  5. TAKEPRON [Concomitant]
     Indication: PROPHYLAXIS
     Route: 048
  6. AMOBAN [Concomitant]
     Indication: INSOMNIA
     Route: 048
  7. AMLODIPINE [Concomitant]
     Indication: HYPERTENSION
     Route: 048
  8. AVELOX [Concomitant]
     Indication: FEBRILE NEUTROPENIA
     Route: 048

REACTIONS (5)
  - BLOOD LACTATE DEHYDROGENASE INCREASED [None]
  - FEBRILE NEUTROPENIA [None]
  - HYPERCHLORAEMIA [None]
  - HYPOKALAEMIA [None]
  - NEUTROPHIL COUNT INCREASED [None]
